FAERS Safety Report 15301636 (Version 2)
Quarter: 2018Q4

REPORT INFORMATION
  Report Type: Spontaneous
  Country: US (occurrence: US)
  Receive Date: 20180821
  Receipt Date: 20181010
  Transmission Date: 20190204
  Serious: No
  Sender: FDA-Public Use
  Company Number: US-ASTRAZENECA-2018SE99261

PATIENT
  Age: 27920 Day
  Sex: Female
  Weight: 113.4 kg

DRUGS (7)
  1. BYDUREON [Suspect]
     Active Substance: EXENATIDE
     Indication: TYPE 2 DIABETES MELLITUS
     Route: 058
     Dates: start: 2017, end: 20180726
  2. COUMADINE [Concomitant]
     Active Substance: WARFARIN SODIUM
  3. IRBESARTAN. [Concomitant]
     Active Substance: IRBESARTAN
     Indication: BLOOD PRESSURE ABNORMAL
     Route: 048
     Dates: start: 20180802
  4. XARELTO [Concomitant]
     Active Substance: RIVAROXABAN
     Indication: ANTICOAGULANT THERAPY
     Route: 048
  5. BYDUREON BCISE [Suspect]
     Active Substance: EXENATIDE
     Indication: TYPE 2 DIABETES MELLITUS
     Route: 058
     Dates: start: 20180802
  6. INDERAL LONG ACTING [Concomitant]
     Indication: BLOOD PRESSURE ABNORMAL
     Route: 048
  7. THYROXINE [Concomitant]
     Active Substance: LEVOTHYROXINE
     Indication: THYROID DISORDER
     Route: 048

REACTIONS (6)
  - Injection site indentation [Unknown]
  - Injection site haemorrhage [Recovered/Resolved]
  - Visual impairment [Unknown]
  - Injection site swelling [Not Recovered/Not Resolved]
  - Device defective [Unknown]
  - Product dose omission [Unknown]

NARRATIVE: CASE EVENT DATE: 20180802
